FAERS Safety Report 11178038 (Version 1)
Quarter: 2015Q2

REPORT INFORMATION
  Report Type: Spontaneous
  Country: GR (occurrence: GR)
  Receive Date: 20150610
  Receipt Date: 20150610
  Transmission Date: 20150821
  Serious: Yes (Death)
  Sender: FDA-Public Use
  Company Number: GR-ACTELION-A-CH2015-118930

PATIENT
  Age: 48 Year
  Sex: Female
  Weight: 50 kg

DRUGS (5)
  1. TRACLEER [Suspect]
     Active Substance: BOSENTAN\BOSENTAN MONOHYDRATE
     Indication: PULMONARY ARTERIAL HYPERTENSION
     Dosage: 125 MG, BID
     Route: 048
     Dates: start: 2005, end: 20150531
  2. TADALAFIL [Concomitant]
     Active Substance: TADALAFIL
     Indication: PULMONARY ARTERIAL HYPERTENSION
     Dosage: UNK
     Dates: start: 201503
  3. VELETRI [Suspect]
     Active Substance: EPOPROSTENOL
     Indication: PULMONARY ARTERIAL HYPERTENSION
     Dosage: UNK
     Route: 042
     Dates: start: 201502, end: 20150531
  4. FUROSEMIDE. [Concomitant]
     Active Substance: FUROSEMIDE
     Dosage: UNK
     Dates: start: 2006
  5. SPIROLACTON [Concomitant]
     Dosage: UNK
     Dates: start: 2006

REACTIONS (3)
  - Syncope [Fatal]
  - N-terminal prohormone brain natriuretic peptide increased [Not Recovered/Not Resolved]
  - Hypoxia [Fatal]

NARRATIVE: CASE EVENT DATE: 20150531
